FAERS Safety Report 26196467 (Version 1)
Quarter: 2025Q4

REPORT INFORMATION
  Report Type: Spontaneous
  Country: US (occurrence: US)
  Receive Date: 20251224
  Receipt Date: 20251224
  Transmission Date: 20260117
  Serious: Yes (Other)
  Sender: IOVANCE BIOTHERAPEUTICS
  Company Number: US-IOVANCE BIOTHERAPEUTICS, INC-2025IOV000245

PATIENT
  Age: 73 Year
  Sex: Male

DRUGS (4)
  1. AMTAGVI [Suspect]
     Active Substance: LIFILEUCEL
     Indication: Malignant melanoma
     Dosage: UNK
     Dates: start: 20251209, end: 20251209
  2. ALDESLEUKIN [Suspect]
     Active Substance: ALDESLEUKIN
     Indication: Interleukin therapy
     Dosage: 3 DOSES
     Dates: start: 20251209, end: 20251212
  3. CYCLOPHOSPHAMIDE [Suspect]
     Active Substance: CYCLOPHOSPHAMIDE
     Indication: Lymphodepletion
  4. FLUDARABINE [Suspect]
     Active Substance: FLUDARABINE PHOSPHATE
     Indication: Lymphodepletion

REACTIONS (13)
  - Rash [Unknown]
  - Urine output decreased [Unknown]
  - Blood creatinine increased [Unknown]
  - Oedema [Unknown]
  - Dyspnoea [Unknown]
  - Tachypnoea [Unknown]
  - Hypotension [Unknown]
  - Chills [Unknown]
  - Pyrexia [Unknown]
  - Petechiae [Unknown]
  - Thrombocytopenia [Unknown]
  - Periorbital oedema [Unknown]
  - Eye pain [Unknown]

NARRATIVE: CASE EVENT DATE: 20251212
